FAERS Safety Report 10666481 (Version 10)
Quarter: 2015Q4

REPORT INFORMATION
  Report Type: Spontaneous
  Country: US (occurrence: US)
  Receive Date: 20141221
  Receipt Date: 20151026
  Transmission Date: 20160304
  Serious: Yes (Hospitalization, Other)
  Sender: FDA-Public Use
  Company Number: US-GLAXOSMITHKLINE-A1090917A

PATIENT
  Age: 76 Year
  Sex: Female

DRUGS (28)
  1. ADVAIR HFA [Suspect]
     Active Substance: FLUTICASONE PROPIONATE\SALMETEROL XINAFOATE
     Indication: CHRONIC OBSTRUCTIVE PULMONARY DISEASE
     Dosage: UNK
     Dates: start: 2001
  2. ALPRAZOLAM. [Concomitant]
     Active Substance: ALPRAZOLAM
  3. ADVAIR HFA [Suspect]
     Active Substance: FLUTICASONE PROPIONATE\SALMETEROL XINAFOATE
     Indication: RESPIRATORY DISORDER
     Dosage: 1 PUFF(S), BID
     Route: 055
     Dates: start: 2010
  4. FUROSEMIDE. [Concomitant]
     Active Substance: FUROSEMIDE
  5. ACIPHEX [Concomitant]
     Active Substance: RABEPRAZOLE SODIUM
  6. BACTROBAN [Suspect]
     Active Substance: MUPIROCIN\MUPIROCIN CALCIUM
     Indication: PRODUCT USED FOR UNKNOWN INDICATION
     Dosage: 2 PERCENT TOPICAL OINTMENT
     Route: 061
     Dates: start: 2001
  7. HYDROXYZINE PAM [Concomitant]
  8. SPIRIVA [Concomitant]
     Active Substance: TIOTROPIUM BROMIDE MONOHYDRATE
  9. ALBUTEROL. [Concomitant]
     Active Substance: ALBUTEROL
  10. VENTOLIN [Suspect]
     Active Substance: ALBUTEROL SULFATE
     Indication: RESPIRATORY DISORDER
     Dosage: 1 PUFF(S), QD
     Route: 055
     Dates: start: 2001
  11. LISINOPRIL. [Concomitant]
     Active Substance: LISINOPRIL
  12. VISTARIL [Concomitant]
     Active Substance: HYDROXYZINE PAMOATE
  13. PEPCID [Concomitant]
     Active Substance: FAMOTIDINE
  14. IPRATROPIUM BROMIDE. [Concomitant]
     Active Substance: IPRATROPIUM BROMIDE
  15. CITRUCEL [Concomitant]
     Active Substance: METHYLCELLULOSE (4000 MPA.S)
  16. XANAX [Concomitant]
     Active Substance: ALPRAZOLAM
  17. ADVAIR HFA [Suspect]
     Active Substance: FLUTICASONE PROPIONATE\SALMETEROL XINAFOATE
     Indication: EMPHYSEMA
  18. FURADANTIN [Concomitant]
     Active Substance: NITROFURANTOIN
  19. PRAVASTATIN [Concomitant]
     Active Substance: PRAVASTATIN\PRAVASTATIN SODIUM
  20. GLUCOPHAGE [Concomitant]
     Active Substance: METFORMIN HYDROCHLORIDE
  21. METFORMIN [Concomitant]
     Active Substance: METFORMIN HYDROCHLORIDE
  22. BUSPAR [Concomitant]
     Active Substance: BUSPIRONE HYDROCHLORIDE
  23. SUDAFED [Concomitant]
     Active Substance: PSEUDOEPHEDRINE HYDROCHLORIDE
  24. VENTOLIN [Suspect]
     Active Substance: ALBUTEROL SULFATE
     Indication: CHRONIC OBSTRUCTIVE PULMONARY DISEASE
     Dosage: 1 PUFF(S), PRN
  25. AMBIEN [Concomitant]
     Active Substance: ZOLPIDEM TARTRATE
  26. AVELOX [Concomitant]
     Active Substance: MOXIFLOXACIN HYDROCHLORIDE
  27. MUCINEX D [Concomitant]
     Active Substance: GUAIFENESIN\PSEUDOEPHEDRINE HYDROCHLORIDE
  28. NASONEX [Concomitant]
     Active Substance: MOMETASONE FUROATE

REACTIONS (13)
  - Fall [Recovered/Resolved]
  - Limb operation [Unknown]
  - Micturition urgency [Unknown]
  - Underdose [Unknown]
  - Emergency care [Unknown]
  - Living in residential institution [Unknown]
  - Hip surgery [Recovering/Resolving]
  - Lower limb fracture [Unknown]
  - Headache [Recovering/Resolving]
  - Contusion [Unknown]
  - Expired product administered [Unknown]
  - Hip fracture [Recovered/Resolved]
  - Intensive care [Unknown]

NARRATIVE: CASE EVENT DATE: 201508
